FAERS Safety Report 13801313 (Version 1)
Quarter: 2017Q3

REPORT INFORMATION
  Report Type: Spontaneous
  Country: BR (occurrence: BR)
  Receive Date: 20170727
  Receipt Date: 20170727
  Transmission Date: 20171127
  Serious: Yes (Hospitalization)
  Sender: FDA-Public Use
  Company Number: BR-PFIZER INC-2017307340

PATIENT
  Age: 7 Year
  Sex: Male
  Weight: 23 kg

DRUGS (5)
  1. EUTHYROX [Concomitant]
     Active Substance: LEVOTHYROXINE SODIUM
     Dosage: 25 UG ONCE DAILY EARLY FASTING
  2. SOLU-MEDROL [Suspect]
     Active Substance: METHYLPREDNISOLONE SODIUM SUCCINATE
     Dosage: 10 MG, EVERY 6 HOURS
     Route: 042
     Dates: start: 20170519, end: 20170619
  3. NOVALGINA [Concomitant]
     Active Substance: METAMIZOLE SODIUM
     Dosage: 550 MG, EVERY 6 HOURS
     Dates: start: 20170519, end: 20170619
  4. KEPPRA [Concomitant]
     Active Substance: LEVETIRACETAM
     Dosage: 500 MG, EVERY 12 HOURS
  5. SABRIL [Concomitant]
     Active Substance: VIGABATRIN
     Dosage: 500 MG, EVERY 12 HOURS

REACTIONS (3)
  - Agitation [Recovered/Resolved]
  - Wheezing [Unknown]
  - Irritability [Unknown]

NARRATIVE: CASE EVENT DATE: 2017
